FAERS Safety Report 14925467 (Version 2)
Quarter: 2018Q2

REPORT INFORMATION
  Report Type: Report from Study
  Country: IT (occurrence: IT)
  Receive Date: 20180522
  Receipt Date: 20180528
  Transmission Date: 20180711
  Serious: Yes (Death, Hospitalization, Other)
  Sender: FDA-Public Use
  Company Number: PHHO2018IT006237

PATIENT
  Age: 69 Year
  Sex: Male
  Weight: 57 kg

DRUGS (9)
  1. LGH447 [Suspect]
     Active Substance: INVESTIGATIONAL PRODUCT
     Indication: MYELODYSPLASTIC SYNDROME
  2. CGP 41251 / PKC 412A [Suspect]
     Active Substance: MIDOSTAURIN
     Indication: ACUTE MYELOID LEUKAEMIA
     Dosage: 300
     Route: 048
     Dates: start: 20180326, end: 20180512
  3. AVODART [Concomitant]
     Active Substance: DUTASTERIDE
     Indication: BENIGN PROSTATIC HYPERPLASIA
     Dosage: 2.5 MG, UNK
     Route: 065
  4. CGP 41251 / PKC 412A [Suspect]
     Active Substance: MIDOSTAURIN
     Indication: MYELODYSPLASTIC SYNDROME
  5. SILODYX [Concomitant]
     Active Substance: SILODOSIN
     Indication: BENIGN PROSTATIC HYPERPLASIA
     Dosage: 8 MG, UNK
     Route: 065
  6. LGH447 [Suspect]
     Active Substance: INVESTIGATIONAL PRODUCT
     Indication: ACUTE MYELOID LEUKAEMIA
     Dosage: 300
     Route: 048
     Dates: start: 20180326, end: 20180512
  7. LASIX [Concomitant]
     Active Substance: FUROSEMIDE
     Indication: DIURETIC THERAPY
     Dosage: 25 MG, UNK
     Route: 065
  8. LUVION [Concomitant]
     Indication: DIURETIC THERAPY
     Dosage: 50 MG, UNK
     Route: 065
  9. RANITIDINE. [Concomitant]
     Active Substance: RANITIDINE
     Indication: PROPHYLAXIS AGAINST GASTROINTESTINAL ULCER
     Dosage: 150 MG, UNK
     Route: 065

REACTIONS (5)
  - Clostridium difficile infection [Fatal]
  - Pleural effusion [Fatal]
  - Acute kidney injury [Fatal]
  - Diarrhoea [Not Recovered/Not Resolved]
  - Respiratory tract infection [Not Recovered/Not Resolved]

NARRATIVE: CASE EVENT DATE: 20180508
